FAERS Safety Report 8498302-5 (Version None)
Quarter: 2012Q3

REPORT INFORMATION
  Report Type: 
  Country: None (occurrence: None)
  Receive Date: 20120709
  Receipt Date: 20120621
  Transmission Date: 20120928
  Serious: Yes (Hospitalization)
  Sender: FDA-Public Use
  Company Number: US-AMGEN-USASP2012038027

PATIENT
  Age: 63 Year
  Sex: Female

DRUGS (2)
  1. ENBREL [Suspect]
     Indication: RHEUMATOID ARTHRITIS
     Dosage: 50 MG, 2 TIMES/WK
     Dates: start: 20040326
  2. ENBREL [Suspect]
     Indication: PSORIASIS

REACTIONS (5)
  - NODULE [None]
  - PNEUMONIA [None]
  - INJECTION SITE ERYTHEMA [None]
  - SKIN EXFOLIATION [None]
  - PRURITUS [None]
